FAERS Safety Report 9112742 (Version 1)
Quarter: 2013Q1

REPORT INFORMATION
  Report Type: Spontaneous
  Country: US (occurrence: US)
  Receive Date: 20130211
  Receipt Date: 20130211
  Transmission Date: 20140127
  Serious: No
  Sender: FDA-Public Use
  Company Number: US-ASTRAZENECA-2013SE03159

PATIENT
  Age: 67 Year
  Sex: Female

DRUGS (5)
  1. CRESTOR [Suspect]
     Dosage: UNKNOWN
     Route: 048
     Dates: start: 2010
  2. METHOTREXATE [Concomitant]
  3. LIPITOR [Concomitant]
  4. ZETIA [Concomitant]
  5. BLOOD THINNERS [Concomitant]

REACTIONS (2)
  - Abnormal weight gain [Unknown]
  - Adverse event [Unknown]
